FAERS Safety Report 10167611 (Version 1)
Quarter: 2014Q2

REPORT INFORMATION
  Report Type: Spontaneous
  Country: CH (occurrence: CH)
  Receive Date: 20140512
  Receipt Date: 20140512
  Transmission Date: 20141212
  Serious: Yes (Hospitalization)
  Sender: FDA-Public Use
  Company Number: CH-ELI_LILLY_AND_COMPANY-CH201405001646

PATIENT
  Age: 43 Year
  Sex: Male

DRUGS (15)
  1. ZYPREXA [Suspect]
     Indication: PRODUCT USED FOR UNKNOWN INDICATION
     Dosage: 20 MG, QD
     Route: 048
     Dates: start: 20140203, end: 20140227
  2. ZYPREXA [Interacting]
     Dosage: 30 MG, QD
     Route: 048
     Dates: start: 20140211, end: 20140219
  3. ZYPREXA [Interacting]
     Dosage: UNK
     Route: 048
     Dates: end: 20140227
  4. DEPAKIN CHRONO [Interacting]
     Indication: BIPOLAR DISORDER
     Dosage: 750 MG, BID
     Route: 048
     Dates: start: 20140130, end: 20140228
  5. DEPAKIN CHRONO [Interacting]
     Dosage: 1000 MG, BID
     Route: 048
  6. LIORESAL [Interacting]
     Indication: PRODUCT USED FOR UNKNOWN INDICATION
     Dosage: 25 MG, UNK
     Route: 065
     Dates: start: 20140217, end: 20140228
  7. RIVOTRIL [Interacting]
     Indication: PRODUCT USED FOR UNKNOWN INDICATION
     Dosage: 2 MG, TID
     Route: 048
     Dates: start: 20140213, end: 20140228
  8. LITHIOFOR [Interacting]
     Indication: BIPOLAR DISORDER
     Dosage: 12 MMOL, BID
     Route: 048
     Dates: start: 20140207, end: 20140228
  9. LITHIOFOR [Interacting]
     Dosage: 18 MMOL, UNK
     Route: 048
     Dates: start: 20140210, end: 20140227
  10. PRAZINE                            /00049902/ [Interacting]
     Indication: PRODUCT USED FOR UNKNOWN INDICATION
     Dosage: 50 MG, TID
     Route: 048
     Dates: start: 20140219, end: 20140228
  11. PRAZINE                            /00049902/ [Interacting]
     Dosage: 50 MG, BID
     Route: 048
     Dates: start: 20140224, end: 20140228
  12. QUETIAPINE [Interacting]
     Indication: PRODUCT USED FOR UNKNOWN INDICATION
     Dosage: 12.5 MG, BID
     Route: 048
     Dates: start: 20140227, end: 20140228
  13. PRADIF [Concomitant]
     Indication: PRODUCT USED FOR UNKNOWN INDICATION
     Dosage: 400 UG, QD
     Route: 048
     Dates: start: 20140204, end: 20140227
  14. AKINETON                           /00079501/ [Concomitant]
     Dosage: 2 MG, BID
     Route: 048
     Dates: start: 20140224, end: 20140228
  15. CIRCADIN [Concomitant]
     Dosage: 6 MG, UNK
     Dates: start: 20140220, end: 20140228

REACTIONS (7)
  - Altered state of consciousness [Recovered/Resolved]
  - Agitation [Unknown]
  - Affect lability [Unknown]
  - Facial asymmetry [Unknown]
  - Respiratory rate decreased [Unknown]
  - Drug interaction [Unknown]
  - Antipsychotic drug level increased [Unknown]
